FAERS Safety Report 6324441-0 (Version None)
Quarter: 2009Q3

REPORT INFORMATION
  Report Type: 
  Country: None (occurrence: None)
  Receive Date: 20090824
  Receipt Date: 20090511
  Transmission Date: 20100115
  Serious: No
  Sender: FDA-Public Use
  Company Number: US-ABBOTT-09P-163-0573079-00

PATIENT
  Sex: Female
  Weight: 61.29 kg

DRUGS (15)
  1. NIASPAN [Suspect]
     Indication: BLOOD CHOLESTEROL
     Route: 048
  2. NIASPAN [Suspect]
  3. NIASPAN [Suspect]
  4. NIASPAN [Suspect]
  5. NIASPAN [Suspect]
  6. NIASPAN [Suspect]
  7. UNKNOWN BLOOD PRESSURE MED [Concomitant]
     Indication: DRUG USE FOR UNKNOWN INDICATION
  8. DETROL LA [Concomitant]
     Indication: BLADDER DISORDER
  9. UNKNOWN DIURETIC [Concomitant]
     Indication: BLOOD PRESSURE
  10. MOBIC [Concomitant]
     Indication: DRUG USE FOR UNKNOWN INDICATION
  11. ASPIRIN [Concomitant]
     Indication: DRUG USE FOR UNKNOWN INDICATION
  12. SENSIPAR [Concomitant]
     Indication: DRUG USE FOR UNKNOWN INDICATION
  13. ENBREL [Concomitant]
     Indication: DRUG USE FOR UNKNOWN INDICATION
  14. ALLOPURINOL [Concomitant]
     Indication: DRUG USE FOR UNKNOWN INDICATION
  15. MEGA DOSES VIT D [Concomitant]
     Indication: DRUG USE FOR UNKNOWN INDICATION

REACTIONS (4)
  - COUGH [None]
  - FLUSHING [None]
  - MUSCLE SPASMS [None]
  - PRURITUS [None]
